FAERS Safety Report 6106588-7 (Version None)
Quarter: 2009Q1

REPORT INFORMATION
  Report Type: 
  Country: None (occurrence: None)
  Receive Date: 20090304
  Receipt Date: 20090227
  Transmission Date: 20090719
  Serious: Yes (Death)
  Sender: FDA-Public Use
  Company Number: 2009SP004543

PATIENT
  Age: 69 Year
  Sex: Male
  Weight: 84 kg

DRUGS (2)
  1. TEMODAL [Suspect]
     Indication: GLIOBLASTOMA
  2. IRINOTECAN HCL [Concomitant]

REACTIONS (1)
  - PNEUMONIA [None]
